FAERS Safety Report 16349715 (Version 1)
Quarter: 2019Q2

REPORT INFORMATION
  Report Type: Spontaneous
  Country: BR (occurrence: BR)
  Receive Date: 20190523
  Receipt Date: 20190523
  Transmission Date: 20190711
  Serious: Yes (Other)
  Sender: FDA-Public Use
  Company Number: BR-VIIV HEALTHCARE LIMITED-BR2019GSK087075

PATIENT
  Sex: Male

DRUGS (2)
  1. DOLUTEGRAVIR + LAMIVUDINE [Suspect]
     Active Substance: DOLUTEGRAVIR SODIUM\LAMIVUDINE
     Indication: HIV INFECTION
     Dosage: UNK
  2. TENOFOVIR [Suspect]
     Active Substance: TENOFOVIR
     Indication: HIV INFECTION
     Dosage: UNK

REACTIONS (4)
  - Face oedema [Unknown]
  - Angioedema [Unknown]
  - Lip oedema [Unknown]
  - Hypersensitivity [Unknown]
